FAERS Safety Report 5350337-7 (Version None)
Quarter: 2007Q2

REPORT INFORMATION
  Report Type: 
  Country: None (occurrence: None)
  Receive Date: 20070516
  Receipt Date: 20061127
  Transmission Date: 20071010
  Serious: Yes (Other)
  Sender: FDA-Public Use
  Company Number: 2006146695

PATIENT
  Sex: Female
  Weight: 60.782 kg

DRUGS (1)
  1. DEPO-PROVERA [Suspect]
     Indication: CONTRACEPTION
     Dosage: EVERY THREE MONTHS

REACTIONS (7)
  - BACK PAIN [None]
  - BREAST MASS [None]
  - BREAST PAIN [None]
  - DIZZINESS [None]
  - HEADACHE [None]
  - MALAISE [None]
  - NAUSEA [None]
